FAERS Safety Report 12802624 (Version 2)
Quarter: 2016Q4

REPORT INFORMATION
  Report Type: Spontaneous
  Country: US (occurrence: US)
  Receive Date: 20161003
  Receipt Date: 20161005
  Transmission Date: 20170207
  Serious: No
  Sender: FDA-Public Use
  Company Number: US-BAYER-2016-190544

PATIENT
  Age: 77 Year
  Sex: Female

DRUGS (2)
  1. GADAVIST [Suspect]
     Active Substance: GADOBUTROL
     Indication: LUNG NEOPLASM MALIGNANT
  2. GADAVIST [Suspect]
     Active Substance: GADOBUTROL
     Indication: NUCLEAR MAGNETIC RESONANCE IMAGING BRAIN
     Dosage: 7 ML, ONCE
     Route: 042
     Dates: start: 20160926, end: 20160926

REACTIONS (1)
  - Nausea [None]

NARRATIVE: CASE EVENT DATE: 20160926
